FAERS Safety Report 5803409-4 (Version None)
Quarter: 2008Q3

REPORT INFORMATION
  Report Type: 
  Country: None (occurrence: None)
  Receive Date: 20080708
  Receipt Date: 20080626
  Transmission Date: 20090109
  Serious: Yes (Hospitalization, Other)
  Sender: FDA-Public Use
  Company Number: US-BAYER-200812624BCC

PATIENT
  Age: 64 Year
  Sex: Female
  Weight: 54 kg

DRUGS (12)
  1. ASPIRIN [Suspect]
     Indication: PULMONARY ARTERIAL HYPERTENSION
     Dosage: TOTAL DAILY DOSE: 81 MG  UNIT DOSE: 81 MG
     Route: 048
     Dates: start: 20080523, end: 20080620
  2. SIMVASTATIN [Suspect]
     Indication: PULMONARY ARTERIAL HYPERTENSION
     Dosage: TOTAL DAILY DOSE: 40 MG  UNIT DOSE: 40 MG
     Route: 048
     Dates: start: 20080523
  3. NORVASC [Concomitant]
  4. LOPRESSOR [Concomitant]
  5. FUROSEMIDE [Concomitant]
  6. SILDENAFIL CITRATE [Concomitant]
  7. FLUTICASONE PROPIONATE [Concomitant]
  8. ZYRTEC [Concomitant]
  9. WARFARIN SODIUM [Concomitant]
  10. OLMESARTAN MEDOXOMIL [Concomitant]
  11. LEVOTHYROXINE SODIUM [Concomitant]
  12. AMBRISENTAN [Concomitant]

REACTIONS (5)
  - DUODENAL ULCER [None]
  - FAECES DISCOLOURED [None]
  - GASTRITIS EROSIVE [None]
  - HAEMOGLOBIN DECREASED [None]
  - OCCULT BLOOD POSITIVE [None]
